FAERS Safety Report 17267868 (Version 4)
Quarter: 2020Q1

REPORT INFORMATION
  Report Type: Spontaneous
  Country: US (occurrence: US)
  Receive Date: 20200114
  Receipt Date: 20200228
  Transmission Date: 20200409
  Serious: No
  Sender: FDA-Public Use
  Company Number: US-PFIZER INC-2019562252

PATIENT
  Age: 82 Year
  Sex: Female
  Weight: 60.78 kg

DRUGS (6)
  1. LOSARTAN. [Concomitant]
     Active Substance: LOSARTAN
     Indication: HYPERTENSION
     Dosage: UNK, 1X/DAY (100.25 MG, ONCE A DAY)
  2. BABY ASPIRIN [Concomitant]
     Active Substance: ASPIRIN
     Dosage: UNK
  3. LOSARTAN. [Concomitant]
     Active Substance: LOSARTAN
     Dosage: UNK, 1X/DAY (100/25MG TABLET ONCE A DAY BY MOUTH)
     Route: 048
  4. PREMARIN [Suspect]
     Active Substance: ESTROGENS, CONJUGATED
     Indication: OOPHORECTOMY
     Dosage: 0.625 MG, 1X/DAY
     Route: 048
  5. IBUPROFEN. [Concomitant]
     Active Substance: IBUPROFEN
     Dosage: 600 MG, UNK, (PRESCRIBED FOR 30 DAYS)
     Dates: start: 20200102
  6. CALCIUM CITRATE/COLECALCIFEROL/MAGNESIUM [Concomitant]
     Dosage: UNK

REACTIONS (2)
  - Stress [Unknown]
  - Malaise [Unknown]
